FAERS Safety Report 18270541 (Version 2)
Quarter: 2020Q4

REPORT INFORMATION
  Report Type: Report from Study
  Country: US (occurrence: US)
  Receive Date: 20200915
  Receipt Date: 20201002
  Transmission Date: 20210113
  Serious: Yes (Hospitalization)
  Sender: FDA-Public Use
  Company Number: US-JNJFOC-A-US2018-177205

PATIENT
  Age: 41 Year
  Sex: Male
  Weight: 83.99 kg

DRUGS (16)
  1. ADCIRCA [Concomitant]
     Active Substance: TADALAFIL
  2. VELETRI [Suspect]
     Active Substance: EPOPROSTENOL
     Dosage: 42.66 NG/KG, PER MIN
     Route: 042
  3. VELETRI [Suspect]
     Active Substance: EPOPROSTENOL
     Dosage: 37.7 NG/KG, PER MIN
     Route: 042
  4. VELETRI [Suspect]
     Active Substance: EPOPROSTENOL
     Dosage: 9.42 NG/KG, PER MIN
     Route: 042
  5. VELETRI [Suspect]
     Active Substance: EPOPROSTENOL
     Dosage: 20.59 NG/KG, PER MIN
     Route: 042
  6. VELETRI [Suspect]
     Active Substance: EPOPROSTENOL
     Dosage: 30.5 NG/KG, PER MIN
     Route: 042
  7. OPSUMIT [Suspect]
     Active Substance: MACITENTAN
     Dosage: 10 MG, QD
     Route: 048
  8. ELIQUIS [Concomitant]
     Active Substance: APIXABAN
  9. AMIODARONE [Concomitant]
     Active Substance: AMIODARONE
  10. COUMADIN [Concomitant]
     Active Substance: WARFARIN SODIUM
  11. VELETRI [Suspect]
     Active Substance: EPOPROSTENOL
     Dosage: 40.67 NG/KG, PER MIN
     Route: 042
  12. DILTIAZEM. [Concomitant]
     Active Substance: DILTIAZEM
  13. VELETRI [Suspect]
     Active Substance: EPOPROSTENOL
     Dosage: 27.9 NG/KG, PER MIN
     Route: 042
  14. VELETRI [Suspect]
     Active Substance: EPOPROSTENOL
     Indication: PULMONARY HYPERTENSION
     Dosage: 43.15 NG/KG/MIN
     Route: 042
  15. VELETRI [Suspect]
     Active Substance: EPOPROSTENOL
     Dosage: 29.8 NG/KG, PER MIN
     Route: 042
  16. OPSUMIT [Suspect]
     Active Substance: MACITENTAN
     Indication: PULMONARY HYPERTENSION
     Dosage: 10 MG, QD
     Route: 048
     Dates: start: 20170920

REACTIONS (27)
  - Swelling [Not Recovered/Not Resolved]
  - Headache [Unknown]
  - Fatigue [Unknown]
  - Body temperature increased [Unknown]
  - Cellulitis [Unknown]
  - Oedema peripheral [Recovered/Resolved]
  - Device occlusion [Unknown]
  - Dyspnoea [Recovered/Resolved]
  - Diarrhoea [Unknown]
  - Pulmonary arterial hypertension [Unknown]
  - Pain in jaw [Unknown]
  - Palpitations [Unknown]
  - Influenza like illness [Unknown]
  - Haemoptysis [Unknown]
  - Procedural complication [Unknown]
  - Nausea [Unknown]
  - Atrial fibrillation [Recovered/Resolved]
  - Atrial tachycardia [Recovered/Resolved]
  - Fluid overload [Recovered/Resolved]
  - Chest discomfort [Recovered/Resolved]
  - Weight increased [Unknown]
  - Dyspnoea exertional [Not Recovered/Not Resolved]
  - Dizziness [Recovered/Resolved]
  - Gout [Unknown]
  - Unevaluable event [Unknown]
  - Flushing [Unknown]
  - Neuralgia [Unknown]

NARRATIVE: CASE EVENT DATE: 201807
